FAERS Safety Report 7953932-1 (Version None)
Quarter: 2011Q4

REPORT INFORMATION
  Report Type: 
  Country: None (occurrence: None)
  Receive Date: 20111202
  Receipt Date: 20111129
  Transmission Date: 20120403
  Serious: Yes (Hospitalization, Other)
  Sender: FDA-Public Use
  Company Number: SI-PFIZER INC-2011290400

PATIENT
  Age: 33 Year
  Sex: Male

DRUGS (7)
  1. CIALIS [Suspect]
     Dosage: UNK
  2. TAMOXIFEN [Suspect]
     Dosage: UNK
  3. NEXIUM [Suspect]
     Dosage: UNK
  4. RELPAX [Suspect]
     Dosage: UNK
  5. TRAMADOL HCL [Suspect]
     Dosage: UNK
  6. NOVORAPID [Suspect]
     Dosage: UNK
  7. EPHEDRINE [Suspect]
     Dosage: UNK

REACTIONS (3)
  - EPILEPSY [None]
  - DRUG ABUSE [None]
  - HORMONE LEVEL ABNORMAL [None]
